FAERS Safety Report 22372192 (Version 1)
Quarter: 2023Q2

REPORT INFORMATION
  Report Type: Other
  Country: None (occurrence: HU)
  Receive Date: 20230526
  Receipt Date: 20230526
  Transmission Date: 20230722
  Serious: Yes (Death, Other)
  Sender: FDA-Public Use
  Company Number: HU-Guardian Drug Company-2142031

PATIENT
  Age: 26 Year
  Sex: Male

DRUGS (6)
  1. POTASSIUM CHLORIDE [Suspect]
     Active Substance: POTASSIUM CHLORIDE
     Indication: Product used for unknown indication
     Route: 065
  2. SODIUM CHLORIDE [Suspect]
     Active Substance: SODIUM CHLORIDE
     Route: 065
  3. ACETAMINOPHEN [Suspect]
     Active Substance: ACETAMINOPHEN
     Route: 065
  4. THEOPHYLLINE [Suspect]
     Active Substance: THEOPHYLLINE
     Route: 065
  5. CAFFEINE [Suspect]
     Active Substance: CAFFEINE
     Route: 065
  6. TRAMADOL [Suspect]
     Active Substance: TRAMADOL
     Route: 065

REACTIONS (11)
  - Brain oedema [Fatal]
  - Hypovolaemia [Fatal]
  - Cardiac disorder [Fatal]
  - Coagulopathy [Fatal]
  - Pulmonary congestion [Fatal]
  - Pulmonary oedema [Fatal]
  - Congestive hepatopathy [Fatal]
  - Kidney congestion [Fatal]
  - Hepatic steatosis [Fatal]
  - Hyperkalaemia [Fatal]
  - Overdose [Unknown]
